FAERS Safety Report 10014621 (Version 1)
Quarter: 2014Q1

REPORT INFORMATION
  Report Type: Spontaneous
  Country: FR (occurrence: FR)
  Receive Date: 20140317
  Receipt Date: 20140317
  Transmission Date: 20141002
  Serious: Yes (Other)
  Sender: FDA-Public Use
  Company Number: FR-JNJFOC-20140306625

PATIENT
  Age: 60 Year
  Sex: Female

DRUGS (1)
  1. USTEKINUMAB [Suspect]
     Indication: CROHN^S DISEASE
     Route: 058
     Dates: start: 201002, end: 201310

REACTIONS (3)
  - Optic neuritis [Recovering/Resolving]
  - Primary progressive multiple sclerosis [Recovering/Resolving]
  - Off label use [Unknown]
